FAERS Safety Report 4646617-0 (Version None)
Quarter: 2005Q2

REPORT INFORMATION
  Report Type: 
  Country: None (occurrence: None)
  Receive Date: 20050427
  Receipt Date: 20050209
  Transmission Date: 20051028
  Serious: No
  Sender: FDA-Public Use
  Company Number: US-GLAXOSMITHKLINE-A0544777A

PATIENT
  Sex: Male

DRUGS (25)
  1. FLOVENT [Suspect]
     Indication: ASTHMA
     Dosage: 2PUFF TWICE PER DAY
     Route: 055
  2. ADVAIR DISKUS 100/50 [Concomitant]
  3. ALTACE [Concomitant]
  4. PREVACID [Concomitant]
  5. BEXTRA [Concomitant]
  6. ASPIRIN [Concomitant]
  7. ISOSORBIDE NITRATE [Concomitant]
  8. WELLBUTRIN [Concomitant]
  9. LIPITOR [Concomitant]
  10. ALLOPURINOL [Concomitant]
  11. HCT [Concomitant]
  12. EFFEXOR [Concomitant]
  13. LOPID [Concomitant]
  14. METHADONE [Concomitant]
  15. ALBUTEROL NEB [Concomitant]
  16. ALBUTEROL [Concomitant]
  17. PATANOL [Concomitant]
  18. VICODIN [Concomitant]
  19. TRAZODONE HCL [Concomitant]
  20. SINGULAIR [Concomitant]
  21. FLONASE [Concomitant]
  22. GEODON [Concomitant]
  23. BUSPAR [Concomitant]
  24. CARBATROL [Concomitant]
  25. AMILORIDE [Concomitant]

REACTIONS (1)
  - DRUG INEFFECTIVE [None]
